FAERS Safety Report 7490209-5 (Version None)
Quarter: 2011Q2

REPORT INFORMATION
  Report Type: 
  Country: None (occurrence: None)
  Receive Date: 20110519
  Receipt Date: 20110412
  Transmission Date: 20111010
  Serious: Yes (Other)
  Sender: FDA-Public Use
  Company Number: US-BAYER-2011-032075

PATIENT
  Sex: Female
  Weight: 74 kg

DRUGS (9)
  1. YASMIN [Suspect]
     Dosage: UNK
     Route: 048
     Dates: start: 20040601, end: 20080801
  2. VENTOLIN [Concomitant]
  3. IMIPRAMINE [Concomitant]
     Indication: ANXIETY
     Dosage: UNK
     Dates: start: 19890101
  4. PRILOSEC [Concomitant]
     Indication: DYSPEPSIA
     Dosage: UNK
     Dates: start: 20070509
  5. IMIPRAMINE [Concomitant]
     Indication: DEPRESSION
  6. ACIPHEX [Concomitant]
     Indication: ABDOMINAL PAIN
     Dosage: UNK
     Dates: start: 20071212
  7. IBUPROFEN [Concomitant]
  8. ZANTAC [Concomitant]
     Indication: PAIN
     Dosage: UNK
     Dates: start: 20080401
  9. TRI-SPRINTEC [Concomitant]
     Dosage: UNK
     Dates: end: 20040801

REACTIONS (5)
  - GALLBLADDER DISORDER [None]
  - INJURY [None]
  - CHOLELITHIASIS [None]
  - CHOLECYSTITIS CHRONIC [None]
  - PAIN [None]
